FAERS Safety Report 12127400 (Version 3)
Quarter: 2016Q3

REPORT INFORMATION
  Report Type: Spontaneous
  Country: JP (occurrence: JP)
  Receive Date: 20160229
  Receipt Date: 20160810
  Transmission Date: 20161109
  Serious: Yes (Hospitalization, Other)
  Sender: FDA-Public Use
  Company Number: JP-GILEAD-2016-0195767

PATIENT
  Age: 48 Year
  Sex: Male
  Weight: 76 kg

DRUGS (11)
  1. HARVONI [Suspect]
     Active Substance: LEDIPASVIR\SOFOSBUVIR
     Indication: CHRONIC HEPATITIS C
     Dosage: 1 DF, QD
     Route: 048
     Dates: start: 20160106
  2. TETRAMIDE [Concomitant]
     Active Substance: MIANSERIN
     Dosage: 30 MG, QD
     Route: 048
  3. SULPIRIDE [Concomitant]
     Active Substance: SULPIRIDE
     Dosage: 50 MG, BID
     Route: 048
  4. URSO [Concomitant]
     Active Substance: URSODIOL
     Dosage: 50 MG, 6 TIMES PER DAY
     Route: 048
  5. CLINORIL BANYU [Concomitant]
     Dosage: 50 MG, BID
     Route: 048
  6. CINAL S [Concomitant]
     Active Substance: VITAMINS
     Dosage: 3 DF, UNK
     Route: 048
  7. REMERON [Concomitant]
     Active Substance: MIRTAZAPINE
     Dosage: 15 MG, TID
     Route: 048
  8. PRIMPERAN [Concomitant]
     Active Substance: METOCLOPRAMIDE HYDROCHLORIDE
     Dosage: 5 MG, 6 TIMES PER DAY
     Route: 048
  9. GASCON SEICHOYAKU [Concomitant]
     Dosage: 40 MG, UNK
     Route: 048
  10. RIVOTRIL [Concomitant]
     Active Substance: CLONAZEPAM
     Dosage: 0.5 MG, QD
     Route: 048
  11. LEXOTAN [Concomitant]
     Active Substance: BROMAZEPAM
     Dosage: 1 MG, BID
     Route: 048

REACTIONS (4)
  - Palpitations [Unknown]
  - Gastric varices haemorrhage [Recovered/Resolved]
  - Melaena [Unknown]
  - Haematemesis [Recovered/Resolved]

NARRATIVE: CASE EVENT DATE: 20160127
